FAERS Safety Report 6343235-3 (Version None)
Quarter: 2009Q3

REPORT INFORMATION
  Report Type: 
  Country: None (occurrence: None)
  Receive Date: 20090908
  Receipt Date: 20090826
  Transmission Date: 20100115
  Serious: Yes (Other)
  Sender: FDA-Public Use
  Company Number: PHHY2009JP36948

PATIENT

DRUGS (3)
  1. ZOMETA [Suspect]
     Indication: GASTRIC CANCER
     Dosage: UNK
     Route: 042
     Dates: start: 20080701
  2. TS 1 [Suspect]
     Indication: GASTRIC CANCER
     Dosage: UNK
     Dates: start: 20080501
  3. CISPLATIN [Suspect]
     Indication: GASTRIC CANCER
     Dosage: UNK
     Route: 042
     Dates: start: 20080501

REACTIONS (1)
  - BLOOD ALBUMIN DECREASED [None]
